FAERS Safety Report 24061359 (Version 2)
Quarter: 2024Q3

REPORT INFORMATION
  Report Type: Spontaneous
  Country: US (occurrence: US)
  Receive Date: 20240708
  Receipt Date: 20240801
  Transmission Date: 20241017
  Serious: Yes (Other)
  Sender: PFIZER
  Company Number: US-PFIZER INC-PV202400079444

PATIENT
  Age: 74 Year
  Sex: Female
  Weight: 61.688 kg

DRUGS (1)
  1. PREMARIN [Suspect]
     Active Substance: ESTROGENS, CONJUGATED
     Indication: Infection prophylaxis
     Dosage: 2 TIMES A WEEK
     Route: 061

REACTIONS (3)
  - Breast cancer [Unknown]
  - Intentional product misuse [Unknown]
  - Off label use [Unknown]
